FAERS Safety Report 10413167 (Version 1)
Quarter: 2014Q3

REPORT INFORMATION
  Report Type: Spontaneous
  Country: CZ (occurrence: CZ)
  Receive Date: 20140827
  Receipt Date: 20140827
  Transmission Date: 20150326
  Serious: Yes (Hospitalization)
  Sender: FDA-Public Use
  Company Number: PHHY2014CZ103987

PATIENT
  Age: 72 Year
  Sex: Female

DRUGS (1)
  1. ATORVASTATIN [Suspect]
     Active Substance: ATORVASTATIN
     Indication: HYPERCHOLESTEROLAEMIA
     Dosage: 40 MG/DAY FOR 30 MONTHS

REACTIONS (10)
  - Muscle necrosis [Recovered/Resolved]
  - Blood creatine phosphokinase increased [Recovered/Resolved]
  - Malaise [Recovered/Resolved]
  - Muscular weakness [Recovered/Resolved]
  - Photosensitivity reaction [Recovered/Resolved]
  - Polymyositis [Recovered/Resolved]
  - Muscle contractions involuntary [Recovered/Resolved]
  - Raynaud^s phenomenon [Recovered/Resolved]
  - Dyspnoea exertional [Recovered/Resolved]
  - Myoglobin blood increased [Recovered/Resolved]
